FAERS Safety Report 11637893 (Version 1)
Quarter: 2015Q4

REPORT INFORMATION
  Report Type: Spontaneous
  Country: US (occurrence: US)
  Receive Date: 20151016
  Receipt Date: 20151016
  Transmission Date: 20160304
  Serious: No
  Sender: FDA-Public Use
  Company Number: US-AMNEAL PHARMACEUTICALS-2015AMN00134

PATIENT
  Age: 43 Year
  Sex: Male
  Weight: 74.83 kg

DRUGS (1)
  1. HYDROCODONE AND ACETAMINOPHEN [Suspect]
     Active Substance: ACETAMINOPHEN\HYDROCODONE
     Indication: PAIN
     Dosage: 4 TABLETS, 1X/DAY
     Route: 048
     Dates: start: 20150216, end: 20150219

REACTIONS (11)
  - Poor quality sleep [Recovering/Resolving]
  - Anxiety [Recovering/Resolving]
  - Mood altered [Recovering/Resolving]
  - Initial insomnia [Recovering/Resolving]
  - Palpitations [Recovering/Resolving]
  - Coordination abnormal [Recovering/Resolving]
  - Drug withdrawal syndrome [Recovering/Resolving]
  - Rhinorrhoea [Recovering/Resolving]
  - Lacrimation increased [Recovering/Resolving]
  - Dyspnoea [Recovering/Resolving]
  - Dyspepsia [Recovering/Resolving]

NARRATIVE: CASE EVENT DATE: 20150216
